FAERS Safety Report 11701863 (Version 1)
Quarter: 2015Q4

REPORT INFORMATION
  Report Type: Spontaneous
  Country: US (occurrence: US)
  Receive Date: 20151105
  Receipt Date: 20151105
  Transmission Date: 20160304
  Serious: No
  Sender: FDA-Public Use
  Company Number: US-AKRIMAX-TIR-2015-0133

PATIENT
  Age: 77 Year
  Sex: Female

DRUGS (2)
  1. LYRICA [Concomitant]
     Active Substance: PREGABALIN
     Indication: PRODUCT USED FOR UNKNOWN INDICATION
     Dosage: TAKEN FOR OVER TWO YEARS
     Dates: start: 20150903
  2. TIROSINT [Suspect]
     Active Substance: LEVOTHYROXINE SODIUM
     Indication: HYPOTHYROIDISM
     Dosage: 2 CAPS 3 DAYS A WK / 1 CAP 4 DAYS A WK
     Route: 048
     Dates: start: 201508, end: 201509

REACTIONS (13)
  - Paraesthesia [Unknown]
  - Adverse event [Unknown]
  - Dysgeusia [Unknown]
  - Panic attack [Unknown]
  - Hypersensitivity [Unknown]
  - Heart rate increased [Unknown]
  - Blood sodium decreased [Unknown]
  - Anxiety [Unknown]
  - Sleep disorder [Unknown]
  - Dry mouth [Unknown]
  - Chills [Unknown]
  - Dry throat [Unknown]
  - Feeling abnormal [Unknown]

NARRATIVE: CASE EVENT DATE: 201508
